FAERS Safety Report 7922742-3 (Version None)
Quarter: 2011Q4

REPORT INFORMATION
  Report Type: 
  Country: None (occurrence: None)
  Receive Date: 20111117
  Receipt Date: 20110727
  Transmission Date: 20120403
  Serious: No
  Sender: FDA-Public Use
  Company Number: US-ALLERGAN-1110136US

PATIENT
  Sex: Female

DRUGS (3)
  1. COMBIGAN [Suspect]
     Indication: RETINAL DISORDER
     Dosage: 1 GTT, SINGLE
     Route: 047
     Dates: start: 20110625
  2. COSOPT [Concomitant]
     Indication: RETINAL DISORDER
     Dosage: UNK
     Route: 047
  3. PRED FORTE [Concomitant]
     Indication: RETINAL DISORDER
     Dosage: UNK
     Route: 047
     Dates: start: 20110301

REACTIONS (2)
  - OCULAR HYPERAEMIA [None]
  - EYE IRRITATION [None]
